FAERS Safety Report 9092237 (Version 1)
Quarter: 2013Q1

REPORT INFORMATION
  Report Type: Report from Study
  Country: US (occurrence: US)
  Receive Date: 20130131
  Receipt Date: 20130131
  Transmission Date: 20140127
  Serious: No
  Sender: FDA-Public Use
  Company Number: US-ABBOTT-12P-163-1002950-00

PATIENT
  Age: 47 None
  Sex: Female
  Weight: 120.31 kg

DRUGS (2)
  1. HUMIRA [Suspect]
     Indication: PSORIASIS
     Route: 058
     Dates: start: 2008, end: 201208
  2. AMOXICILLIN [Suspect]
     Indication: FURUNCLE
     Dosage: REPEATED THREE TIMES
     Dates: start: 201208, end: 201209

REACTIONS (14)
  - Furuncle [Recovered/Resolved]
  - Furuncle [Recovered/Resolved]
  - Staphylococcal infection [Recovered/Resolved]
  - Staphylococcal infection [Recovered/Resolved]
  - Pneumonia staphylococcal [Recovered/Resolved]
  - Alopecia [Not Recovered/Not Resolved]
  - Breast disorder female [Recovered/Resolved]
  - Breast discharge [Recovered/Resolved]
  - Wound secretion [Recovered/Resolved]
  - Immune system disorder [Not Recovered/Not Resolved]
  - Vitamin D decreased [Not Recovered/Not Resolved]
  - Psoriasis [Not Recovered/Not Resolved]
  - Pain [Not Recovered/Not Resolved]
  - Device malfunction [Unknown]
